FAERS Safety Report 5490068-6 (Version None)
Quarter: 2007Q4

REPORT INFORMATION
  Report Type: 
  Country: None (occurrence: None)
  Receive Date: 20071018
  Receipt Date: 20071016
  Transmission Date: 20080405
  Serious: Yes (Other)
  Sender: FDA-Public Use
  Company Number: GB-ROXANE LABORATORIES, INC-2007-DE-06095GD

PATIENT
  Age: 30 Year
  Sex: Female
  Weight: 72 kg

DRUGS (8)
  1. PARACETAMOL [Suspect]
     Indication: PAIN
  2. MORPHINE [Suspect]
     Indication: PAIN
     Route: 048
  3. CHLORPHENIRAMINE TAB [Suspect]
     Indication: PRURITUS
     Route: 042
  4. GENTAMICIN [Suspect]
     Route: 042
  5. METRONIDAZOLE [Suspect]
     Route: 042
  6. DEXAMETHASONE 0.5MG TAB [Concomitant]
     Indication: MATERNAL THERAPY TO ENHANCE FOETAL LUNG MATURITY
  7. CYCLOSPORINE [Concomitant]
     Indication: PSORIASIS
     Route: 048
  8. COMPOUND SODIUM LACTATE [Concomitant]
     Dosage: 80 ML/H
     Route: 042

REACTIONS (5)
  - FACE OEDEMA [None]
  - GENERALISED OEDEMA [None]
  - PSORIASIS [None]
  - PYREXIA [None]
  - SOMNOLENCE [None]
